FAERS Safety Report 10143181 (Version 1)
Quarter: 2014Q2

REPORT INFORMATION
  Report Type: Spontaneous
  Country: US (occurrence: None)
  Receive Date: 20140429
  Receipt Date: 20140429
  Transmission Date: 20141212
  Serious: Yes (Other)
  Sender: FDA-Public Use
  Company Number: None

PATIENT
  Age: 63 Year
  Sex: Female
  Weight: 52.16 kg

DRUGS (1)
  1. CEPHALEXIN 500MG [Suspect]
     Indication: LOCALISED INFECTION
     Route: 048
     Dates: start: 20131223, end: 20131223

REACTIONS (3)
  - Urticaria [None]
  - Joint swelling [None]
  - Pruritus [None]
